FAERS Safety Report 7702096-8 (Version None)
Quarter: 2011Q3

REPORT INFORMATION
  Report Type: 
  Country: None (occurrence: None)
  Receive Date: 20110822
  Receipt Date: 20110816
  Transmission Date: 20111222
  Serious: Yes (Death, Other)
  Sender: FDA-Public Use
  Company Number: US-ABBOTT-11P-163-0846686-00

PATIENT
  Sex: Male
  Weight: 44.038 kg

DRUGS (18)
  1. MAGNESIUM [Concomitant]
     Indication: MINERAL SUPPLEMENTATION
  2. DILTIAZEM [Concomitant]
     Indication: HYPERTENSION
  3. ZITHROMYCIN [Concomitant]
     Indication: PROPHYLAXIS
  4. PROGRAF [Concomitant]
     Indication: PROPHYLAXIS AGAINST TRANSPLANT REJECTION
     Dates: start: 20110501
  5. AMBIEN [Concomitant]
     Indication: SLEEP DISORDER THERAPY
  6. ZANTAC [Concomitant]
     Indication: GASTROOESOPHAGEAL REFLUX DISEASE
  7. ADVAIR DISKUS 100/50 [Concomitant]
     Indication: DYSPNOEA
  8. CREON [Suspect]
     Indication: PANCREATIC INSUFFICIENCY
     Dosage: 8 WITH MEALS AND 5 WITH SNACKS
     Dates: start: 20100901, end: 20110501
  9. RAPAMUNE [Concomitant]
     Indication: PROPHYLAXIS AGAINST TRANSPLANT REJECTION
  10. MULTIPLE VITAMINS [Concomitant]
     Indication: VITAMIN SUPPLEMENTATION
  11. BACTRIM [Concomitant]
     Indication: PROPHYLAXIS
  12. VASOTEC [Concomitant]
     Indication: HYPERTENSION
  13. PREVACID [Concomitant]
     Indication: GASTROOESOPHAGEAL REFLUX DISEASE
  14. CALCIUM CARBONATE [Concomitant]
     Indication: MINERAL SUPPLEMENTATION
  15. DILAUDID [Concomitant]
     Indication: PAIN
  16. PROZAC [Concomitant]
     Indication: DEPRESSION
  17. ASCORBIC ACID [Concomitant]
     Indication: VITAMIN SUPPLEMENTATION
  18. PREDNISONE [Concomitant]
     Indication: PANCREATIC INSUFFICIENCY

REACTIONS (4)
  - METASTASES TO LIVER [None]
  - DIARRHOEA [None]
  - PANCREATIC CARCINOMA METASTATIC [None]
  - WEIGHT DECREASED [None]
